FAERS Safety Report 7786062-2 (Version None)
Quarter: 2011Q3

REPORT INFORMATION
  Report Type: 
  Country: None (occurrence: None)
  Receive Date: 20110929
  Receipt Date: 20110916
  Transmission Date: 20111222
  Serious: Yes (Hospitalization)
  Sender: FDA-Public Use
  Company Number: US-ELI_LILLY_AND_COMPANY-US201106005149

PATIENT
  Sex: Female
  Weight: 71 kg

DRUGS (7)
  1. FORTEO [Suspect]
     Dosage: 20 UG, QD
     Route: 058
     Dates: start: 20110601
  2. CORTISONE ACETATE [Concomitant]
  3. AZITHROMYCIN [Concomitant]
  4. FORTEO [Suspect]
     Indication: OSTEOPOROSIS
     Dosage: 20 UG, QD
     Route: 058
     Dates: start: 20101216, end: 20110604
  5. HYDROCODONE BITARTRATE AND ACETAMINOPHEN [Concomitant]
     Indication: ARTHRITIS
     Dosage: 7.5MG/500MG
  6. CALCIUM WITH VITAMIN D [Concomitant]
  7. ERGOCALCIFEROL [Concomitant]

REACTIONS (3)
  - NERVOUSNESS [None]
  - ASTHMA [None]
  - BRONCHITIS [None]
